FAERS Safety Report 10022141 (Version 1)
Quarter: 2014Q1

REPORT INFORMATION
  Report Type: Spontaneous
  Country: US (occurrence: US)
  Receive Date: 20140319
  Receipt Date: 20140319
  Transmission Date: 20141002
  Serious: Yes (Hospitalization)
  Sender: FDA-Public Use
  Company Number: US-GLAXOSMITHKLINE-A1065588A

PATIENT
  Sex: Male
  Weight: 111.4 kg

DRUGS (1)
  1. AVANDIA [Suspect]
     Indication: TYPE 2 DIABETES MELLITUS
     Dosage: 8MG PER DAY
     Route: 048

REACTIONS (5)
  - Myocardial ischaemia [Unknown]
  - Sick sinus syndrome [Unknown]
  - Angina unstable [Unknown]
  - Chest pain [Unknown]
  - Atrial flutter [Unknown]
